FAERS Safety Report 9058509 (Version 1)
Quarter: 2013Q1

REPORT INFORMATION
  Report Type: Spontaneous
  Country: US (occurrence: None)
  Receive Date: 20130118
  Receipt Date: 20130118
  Transmission Date: 20140127
  Serious: Yes (Death, Other)
  Sender: FDA-Public Use
  Company Number: AUR-APL-2013-00437

PATIENT
  Age: 36 Year
  Sex: Male

DRUGS (3)
  1. CITALOPRAM (CITALOPRAM) [Suspect]
     Route: 048
  2. AMPHETAMINE [Suspect]
  3. CLONIDINE [Suspect]

REACTIONS (4)
  - Toxicity to various agents [None]
  - Completed suicide [None]
  - Respiratory arrest [None]
  - Cardiac arrest [None]
